FAERS Safety Report 8811436 (Version 1)
Quarter: 2012Q4

REPORT INFORMATION
  Report Type: 
  Country: SE (occurrence: SE)
  Receive Date: 20120927
  Receipt Date: 20120927
  Transmission Date: 20130627
  Serious: Yes (Other)
  Sender: FDA-Public Use
  Company Number: SE-SANOFI-AVENTIS-2012SA068672

PATIENT
  Age: 52 Year
  Sex: Female

DRUGS (1)
  1. OXALIPLATIN [Suspect]
     Indication: COLONIC CARCINOMA IN SITU
     Route: 065
     Dates: end: 20111019

REACTIONS (2)
  - Akinesia [Unknown]
  - Aphasia [Unknown]
